FAERS Safety Report 4309817-5 (Version None)
Quarter: 2004Q1

REPORT INFORMATION
  Report Type: 
  Country: None (occurrence: None)
  Receive Date: 20040301
  Receipt Date: 20040130
  Transmission Date: 20041129
  Serious: Yes (Hospitalization)
  Sender: FDA-Public Use
  Company Number: US-SHR-04-020548

PATIENT
  Age: 30 Year
  Sex: Female
  Weight: 92.9874 kg

DRUGS (3)
  1. YASMIN [Suspect]
     Indication: ORAL CONTRACEPTION
     Dosage: 1 TAB(S) 1X/DAY ORAL
     Route: 048
     Dates: start: 20021101, end: 20030701
  2. MERIDIA [Concomitant]
  3. METFORMIN HCL [Concomitant]

REACTIONS (5)
  - BACK PAIN [None]
  - OLIGOMENORRHOEA [None]
  - PULMONARY EMBOLISM [None]
  - PULMONARY INFARCTION [None]
  - WEIGHT INCREASED [None]
